FAERS Safety Report 8135774-X (Version None)
Quarter: 2012Q1

REPORT INFORMATION
  Report Type: 
  Country: None (occurrence: None)
  Receive Date: 20120210
  Receipt Date: 20120127
  Transmission Date: 20120608
  Serious: Yes (Other)
  Sender: FDA-Public Use
  Company Number: 2012P1003740

PATIENT
  Age: 77 Year

DRUGS (1)
  1. CEFUROXIME SODIUM [Suspect]

REACTIONS (3)
  - ENDOPHTHALMITIS [None]
  - EYE INFECTION [None]
  - STREPTOCOCCAL INFECTION [None]
